FAERS Safety Report 9244959 (Version 2)
Quarter: 2013Q2

REPORT INFORMATION
  Report Type: Spontaneous
  Country: GB (occurrence: GB)
  Receive Date: 20130422
  Receipt Date: 20130426
  Transmission Date: 20140414
  Serious: Yes (Death, Other)
  Sender: FDA-Public Use
  Company Number: PHFR2013GB002272

PATIENT
  Age: 42 Year
  Sex: Male
  Weight: 134 kg

DRUGS (3)
  1. CLOZARIL [Suspect]
     Indication: SCHIZOPHRENIA
     Dosage: UNK
     Route: 048
     Dates: start: 20060908
  2. CLOZARIL [Suspect]
     Dosage: 400 MG, UNK
     Route: 048
  3. DEPAKOTE [Concomitant]
     Indication: SCHIZOAFFECTIVE DISORDER
     Dosage: 750 MG, DAILY (250 MG IN MORNING AND 500 MG IN NIGHT)
     Route: 048

REACTIONS (2)
  - Myocardial infarction [Fatal]
  - Myocardial ischaemia [Unknown]
